FAERS Safety Report 4277774-6 (Version None)
Quarter: 2004Q1

REPORT INFORMATION
  Report Type: 
  Country: None (occurrence: None)
  Receive Date: 20040122
  Receipt Date: 20040114
  Transmission Date: 20041129
  Serious: No
  Sender: FDA-Public Use
  Company Number: 7216

PATIENT
  Age: 25 Month
  Sex: Female

DRUGS (4)
  1. CARBOPLATIN [Suspect]
     Indication: RETINOBLASTOMA
     Dosage: 20 MG/28 MG/KG PER CYCLE INJ
  2. ETOPOSIDE [Suspect]
     Indication: RETINOBLASTOMA
     Dosage: 12 MG/KG PER CYCLE
  3. VINCRISTINE [Suspect]
     Indication: RETINOBLASTOMA
     Dosage: 0.05 MG/KG PER CYCLE
  4. CICLOSPORIN [Suspect]
     Indication: RETINOBLASTOMA
     Dosage: 33 MG/KG PER CYCLE

REACTIONS (1)
  - EYE MOVEMENT DISORDER [None]
